FAERS Safety Report 8933788 (Version 4)
Quarter: 2013Q3

REPORT INFORMATION
  Report Type: Report from Study
  Country: FR (occurrence: FR)
  Receive Date: 20121129
  Receipt Date: 20130729
  Transmission Date: 20140515
  Serious: Yes (Death, Hospitalization, Other)
  Sender: FDA-Public Use
  Company Number: FR-CELGENEUS-056-21880-12112899

PATIENT
  Age: 62 Year
  Sex: Male
  Weight: 88 kg

DRUGS (19)
  1. REVLIMID [Suspect]
     Indication: PLASMA CELL MYELOMA
     Route: 048
     Dates: start: 20120315
  2. REVLIMID [Suspect]
     Route: 048
     Dates: start: 20121008, end: 20121104
  3. REVLIMID [Suspect]
     Route: 048
     Dates: start: 20120827, end: 20120917
  4. REVLIMID [Suspect]
     Route: 048
     Dates: start: 2012, end: 20121027
  5. BORTEZOMIB [Suspect]
     Indication: PLASMA CELL MYELOMA
     Route: 065
     Dates: start: 20120315
  6. BORTEZOMIB [Suspect]
     Route: 065
     Dates: start: 20120827, end: 20120927
  7. DEXAMETHASONE [Suspect]
     Indication: PLASMA CELL MYELOMA
     Route: 065
     Dates: start: 20120315
  8. DEXAMETHASONE [Suspect]
     Route: 065
     Dates: start: 20120827, end: 20120928
  9. BACTRIM [Concomitant]
     Indication: PNEUMOCYSTIS JIROVECII PNEUMONIA
     Dosage: 1.2857 CAPSULE
     Route: 048
     Dates: start: 20120315
  10. ZELITREX [Concomitant]
     Indication: INFECTION
     Dosage: 2 CAPSULE
     Route: 048
     Dates: start: 20120315
  11. SPECIAFOLDINE [Concomitant]
     Indication: INFECTION
     Dosage: 10 MILLIGRAM
     Route: 048
     Dates: start: 20120315
  12. AMOXICILLIN [Concomitant]
     Indication: INFECTION
     Dosage: 2 CAPSULE
     Route: 048
     Dates: start: 20120315
  13. ASPERGIC [Concomitant]
     Indication: THROMBOSIS
     Dosage: 100 MILLIGRAM
     Route: 048
     Dates: start: 20121008
  14. OMEPRAZOLE [Concomitant]
     Indication: GASTRIC INFECTION
     Dosage: ALD
     Route: 048
     Dates: start: 20120315
  15. AREDIA [Concomitant]
     Indication: PRODUCT USED FOR UNKNOWN INDICATION
     Route: 065
     Dates: start: 20120313
  16. AMLODIPINE [Concomitant]
     Indication: HYPERTENSION
     Route: 048
     Dates: start: 2008
  17. INNOHEP [Concomitant]
     Indication: PRODUCT USED FOR UNKNOWN INDICATION
     Route: 065
     Dates: start: 20120312
  18. ENDOXAN [Concomitant]
     Indication: PLASMA CELL MYELOMA
     Dosage: 18 GRAM
     Route: 065
     Dates: start: 20120522
  19. MELPHALAN [Concomitant]
     Indication: PLASMA CELL MYELOMA
     Route: 065
     Dates: start: 20120621

REACTIONS (1)
  - Metastatic renal cell carcinoma [Fatal]
